FAERS Safety Report 6537450-3 (Version None)
Quarter: 2010Q1

REPORT INFORMATION
  Report Type: 
  Country: None (occurrence: None)
  Receive Date: 20100114
  Receipt Date: 20100106
  Transmission Date: 20100710
  Serious: Yes (Hospitalization)
  Sender: FDA-Public Use
  Company Number: PHHO2009DE10123

PATIENT
  Sex: Male
  Weight: 69 kg

DRUGS (4)
  1. CERTICAN [Suspect]
     Indication: RENAL TRANSPLANT
     Dosage: 0.45 MG, BID
     Route: 048
     Dates: start: 20090216, end: 20091125
  2. MYFORTIC [Concomitant]
     Dosage: UNK
     Dates: start: 20081115, end: 20090216
  3. SANDIMMUNE [Concomitant]
     Indication: RENAL TRANSPLANT
     Dosage: 50 MG, BID
     Route: 048
     Dates: start: 20081115, end: 20091125
  4. URBASON [Concomitant]
     Indication: RENAL TRANSPLANT
     Dosage: 4 MG, QD
     Route: 048
     Dates: start: 20081115, end: 20091125

REACTIONS (4)
  - ABDOMINAL PAIN [None]
  - DIARRHOEA INFECTIOUS [None]
  - FLUID INTAKE REDUCED [None]
  - TRANSPLANT FAILURE [None]
